FAERS Safety Report 6595846-8 (Version None)
Quarter: 2010Q1

REPORT INFORMATION
  Report Type: 
  Country: None (occurrence: None)
  Receive Date: 20100216
  Receipt Date: 20100201
  Transmission Date: 20100710
  Serious: Yes (Other)
  Sender: FDA-Public Use
  Company Number: 2010MB000006

PATIENT
  Sex: Male

DRUGS (3)
  1. KEFLEX [Suspect]
     Indication: ABSCESS ORAL
     Dosage: QD
  2. JANUVIA [Concomitant]
  3. ANTIHYPERTENSIVES [Concomitant]

REACTIONS (5)
  - ABSCESS ORAL [None]
  - CONDITION AGGRAVATED [None]
  - HAEMOGLOBIN DECREASED [None]
  - RECTAL HAEMORRHAGE [None]
  - VOMITING [None]
